FAERS Safety Report 7249190-6 (Version None)
Quarter: 2011Q1

REPORT INFORMATION
  Report Type: 
  Country: None (occurrence: None)
  Receive Date: 20110128
  Receipt Date: 20101116
  Transmission Date: 20110831
  Serious: Yes (Hospitalization)
  Sender: FDA-Public Use
  Company Number: US-BAYER-201022565NA

PATIENT
  Sex: Female
  Weight: 68.027 kg

DRUGS (13)
  1. YASMIN [Suspect]
     Indication: PREMENSTRUAL SYNDROME
  2. ADVIL [Concomitant]
     Indication: MYALGIA
  3. BETAMETHASONE VALERATE [Concomitant]
  4. ACETAMINOPHEN [Concomitant]
     Indication: MYALGIA
     Dosage: AS NEEDED
  5. ACIPHEX [Concomitant]
     Indication: GASTROOESOPHAGEAL REFLUX DISEASE
  6. BENTYL [Concomitant]
     Indication: IRRITABLE BOWEL SYNDROME
  7. YASMIN [Suspect]
     Indication: CONTRACEPTION
     Dosage: UNK
     Route: 048
     Dates: start: 20030201, end: 20050201
  8. YAZ [Suspect]
     Indication: CONTRACEPTION
     Dosage: UNK
     Route: 048
     Dates: start: 20060101, end: 20090601
  9. BENADRYL [Concomitant]
     Indication: HYPERSENSITIVITY
     Dosage: AS NEEDED
  10. ELIDEL [Concomitant]
  11. YAZ [Suspect]
     Indication: PREMENSTRUAL SYNDROME
  12. IBUPROFEN [Concomitant]
     Dosage: AS NEEDED
  13. PREVACID [Concomitant]
     Indication: IRRITABLE BOWEL SYNDROME

REACTIONS (5)
  - BILIARY DYSKINESIA [None]
  - ABDOMINAL PAIN [None]
  - NAUSEA [None]
  - CHEST DISCOMFORT [None]
  - VOMITING [None]
